FAERS Safety Report 21081976 (Version 1)
Quarter: 2022Q3

REPORT INFORMATION
  Report Type: Spontaneous
  Country: US (occurrence: None)
  Receive Date: 20220714
  Receipt Date: 20220714
  Transmission Date: 20221027
  Serious: No
  Sender: FDA-Public Use
  Company Number: None

PATIENT
  Age: 93 Year
  Sex: Male

DRUGS (1)
  1. NIRMATRELVIR\RITONAVIR [Suspect]
     Active Substance: NIRMATRELVIR\RITONAVIR
     Indication: COVID-19
     Dosage: OTHER QUANTITY : 150/100 MG;?FREQUENCY : TWICE A DAY;?
     Route: 048
     Dates: start: 20220626, end: 20220701

REACTIONS (2)
  - Respiration abnormal [None]
  - Dyspnoea [None]

NARRATIVE: CASE EVENT DATE: 20220702
